FAERS Safety Report 9412319 (Version 1)
Quarter: 2013Q3

REPORT INFORMATION
  Report Type: Spontaneous
  Country: US (occurrence: US)
  Receive Date: 20130722
  Receipt Date: 20130722
  Transmission Date: 20140515
  Serious: Yes (Hospitalization, Other)
  Sender: FDA-Public Use
  Company Number: US-ELI_LILLY_AND_COMPANY-US201307006250

PATIENT
  Sex: Female
  Weight: 67.12 kg

DRUGS (1)
  1. HUMALOG LISPRO [Suspect]

REACTIONS (3)
  - Diabetic ketoacidosis [Unknown]
  - Blood glucose increased [Unknown]
  - Blood glucose decreased [Unknown]
